FAERS Safety Report 12183672 (Version 3)
Quarter: 2016Q1

REPORT INFORMATION
  Report Type: Spontaneous
  Country: US (occurrence: US)
  Receive Date: 20160316
  Receipt Date: 20160329
  Transmission Date: 20160526
  Serious: Yes (Hospitalization)
  Sender: FDA-Public Use
  Company Number: US-PFIZER INC-2016153533

PATIENT
  Age: 66 Year
  Sex: Male

DRUGS (19)
  1. ASPIRIN. [Concomitant]
     Active Substance: ASPIRIN
     Indication: PROPHYLAXIS
     Dosage: UNK
     Dates: start: 20151209
  2. LIPITOR [Concomitant]
     Active Substance: ATORVASTATIN CALCIUM
     Indication: CORONARY ARTERY DISEASE
     Dosage: UNK
     Dates: start: 20151209
  3. FLOMAX [Concomitant]
     Active Substance: TAMSULOSIN HYDROCHLORIDE
     Indication: POSTOPERATIVE CARE
     Dosage: UNK
     Dates: start: 20151209
  4. LOPRESSOR [Suspect]
     Active Substance: METOPROLOL TARTRATE
     Indication: CORONARY ARTERY DISEASE
     Dosage: 25 MG, UNK
     Route: 048
     Dates: start: 20151209, end: 20151224
  5. OXYCODONE [Concomitant]
     Active Substance: OXYCODONE
     Indication: PAIN
     Dosage: UNK
     Dates: start: 20151212
  6. IBUPROFEN. [Concomitant]
     Active Substance: IBUPROFEN
     Indication: PAIN
     Dosage: UNK
     Dates: start: 20151209
  7. PRILOSEC [Concomitant]
     Active Substance: OMEPRAZOLE MAGNESIUM
     Indication: PROPHYLAXIS
     Dosage: UNK
     Dates: start: 2014
  8. PIRFENIDONE [Suspect]
     Active Substance: PIRFENIDONE
     Indication: IDIOPATHIC PULMONARY FIBROSIS
     Dosage: 2403 MG, DAILY
     Route: 048
     Dates: start: 20151020, end: 20151203
  9. FLU SHOT [Concomitant]
     Active Substance: INFLUENZA VIRUS VACCINE
     Indication: PROPHYLAXIS
     Dosage: UNK
  10. AMIODARONE HCL [Suspect]
     Active Substance: AMIODARONE HYDROCHLORIDE
     Dosage: 200 MG, UNK
     Route: 048
     Dates: start: 20151209, end: 20151224
  11. PIRFENIDONE [Suspect]
     Active Substance: PIRFENIDONE
     Dosage: 2403 MG, DAILY
     Route: 048
     Dates: start: 20151216
  12. ESBRIET [Concomitant]
     Active Substance: PIRFENIDONE
     Indication: IDIOPATHIC PULMONARY FIBROSIS
     Dosage: UNK
     Dates: start: 201407
  13. NEURONTIN [Concomitant]
     Active Substance: GABAPENTIN
     Indication: PROPHYLAXIS
     Dosage: UNK
     Dates: start: 201512
  14. ACETAMINOPHEN. [Concomitant]
     Active Substance: ACETAMINOPHEN
     Indication: PAIN
     Dosage: UNK
     Dates: start: 20151209
  15. BLINDED THERAPY [Suspect]
     Active Substance: INVESTIGATIONAL PRODUCT
     Indication: IDIOPATHIC PULMONARY FIBROSIS
     Dosage: ONCE EVERY 4 WEEKS
     Route: 058
     Dates: start: 20151020, end: 20151117
  16. DOCUSATE [Concomitant]
     Active Substance: DOCUSATE
     Indication: CONSTIPATION PROPHYLAXIS
     Dosage: UNK
     Dates: start: 20151209
  17. CARDIZEM CD [Suspect]
     Active Substance: DILTIAZEM HYDROCHLORIDE
     Indication: CORONARY ARTERY DISEASE
     Dosage: 120 MG, UNK
     Route: 048
     Dates: start: 20151209, end: 20151224
  18. POTASSIUM CHLORIDE. [Concomitant]
     Active Substance: POTASSIUM CHLORIDE
     Indication: POSTOPERATIVE CARE
     Dosage: UNK
     Dates: start: 20151209
  19. LASIX [Suspect]
     Active Substance: FUROSEMIDE
     Indication: PROPHYLAXIS
     Dosage: UNK
     Route: 048
     Dates: start: 20151209, end: 20151224

REACTIONS (2)
  - Bradycardia [Unknown]
  - Hypotension [Recovering/Resolving]

NARRATIVE: CASE EVENT DATE: 20151224
